FAERS Safety Report 18260471 (Version 1)
Quarter: 2020Q3

REPORT INFORMATION
  Report Type: Spontaneous
  Country: GB (occurrence: GB)
  Receive Date: 20200914
  Receipt Date: 20200914
  Transmission Date: 20201103
  Serious: Yes (Disabling, Other)
  Sender: FDA-Public Use
  Company Number: GB-TEVA-2020-GB-1825540

PATIENT
  Age: 85 Year
  Sex: Male
  Weight: 75 kg

DRUGS (14)
  1. EDOXABAN [Concomitant]
     Active Substance: EDOXABAN TOSYLATE
     Indication: ATRIAL FIBRILLATION
     Dosage: 60 MILLIGRAM DAILY; INSTALMENTS: DISPENSE WEEKLY. IN THE MORNING (TO THIN BLOOD FOR AF)
     Route: 048
     Dates: start: 20200608
  2. COLECALCIFEROL [Concomitant]
     Active Substance: CHOLECALCIFEROL
     Indication: VITAMIN SUPPLEMENTATION
     Dosage: INSTALMENTS: DISPENSE WEEKLY, 800 IU
     Route: 048
     Dates: start: 20200608
  3. SERTRALINE [Concomitant]
     Active Substance: SERTRALINE HYDROCHLORIDE
     Indication: AFFECTIVE DISORDER
     Dosage: INSTALMENTS: DISPENSE WEEKLY, 100 MG
     Route: 048
     Dates: start: 20200608, end: 20200626
  4. MAIZE STARCH [Concomitant]
     Dosage: AS DIRECTED (THICKENER)
     Dates: start: 20200608
  5. ATORVASTATIN [Concomitant]
     Active Substance: ATORVASTATIN
     Indication: BLOOD CHOLESTEROL
     Dosage: 20 MILLIGRAM DAILY; INSTALMENTS: DISPENSE WEEKLY. IN THE MORNING
     Route: 048
     Dates: start: 20200608
  6. SODIUM CHLORIDE SOLUTION 0.9% [Concomitant]
     Active Substance: SODIUM CHLORIDE
     Dosage: AS DIRECT, 0.9 PERCENT
     Dates: start: 20200620
  7. FOLIC ACID. [Concomitant]
     Active Substance: FOLIC ACID
     Dosage: INSTALMENTS: DISPENSE WEEKLY. VITAMIN, 5 MG
     Route: 048
     Dates: start: 20200608
  8. PARACETAMOL [Concomitant]
     Active Substance: ACETAMINOPHEN
     Indication: PAIN
     Dosage: 1 TO 2 TABLET(S) EVERY FOUR TO SIX HOURS, MAXIMUM 8 TABLETS IN 24 HOURS , UNIT DOSE:500 MG
     Route: 048
     Dates: start: 20200617
  9. ENALAPRIL [Concomitant]
     Active Substance: ENALAPRIL
     Indication: BLOOD PRESSURE MEASUREMENT
     Dosage: INSTALMENTS: DISPENSE WEEKLY, 2.5 MG
     Route: 048
     Dates: start: 20200608
  10. BISOPROLOL [Concomitant]
     Active Substance: BISOPROLOL
     Indication: BLOOD PRESSURE MEASUREMENT
     Dosage: INSTALMENTS: DISPENSE WEEKLY, 1.25 MG
     Route: 048
     Dates: start: 20200608
  11. FUROSEMIDE. [Concomitant]
     Active Substance: FUROSEMIDE
     Indication: FLUID RETENTION
     Dosage: 20 MILLIGRAM DAILY; INSTALMENTS: DISPENSE WEEKLY. EVERY MORNING
     Dates: start: 20200608
  12. SPIRONOLACTONE. [Concomitant]
     Active Substance: SPIRONOLACTONE
     Dosage: 25 MILLIGRAM DAILY; INSTALMENTS: DISPENSE WEEKLY. EVERY MORNING (FOR HEART)
     Route: 048
     Dates: start: 20200608
  13. DONEPEZIL. [Suspect]
     Active Substance: DONEPEZIL
     Indication: DEMENTIA
     Dosage: 10 MG
     Route: 048
  14. SERTRALINE [Concomitant]
     Active Substance: SERTRALINE HYDROCHLORIDE
     Dosage: FOR 7 DAYS THEN STOP, 50 MG
     Route: 048
     Dates: start: 20200608

REACTIONS (3)
  - Sedation [Recovered/Resolved]
  - Diarrhoea [Recovered/Resolved]
  - Anal incontinence [Recovered/Resolved]

NARRATIVE: CASE EVENT DATE: 20200624
